FAERS Safety Report 9315136 (Version 2)
Quarter: 2014Q2

REPORT INFORMATION
  Report Type: Spontaneous
  Country: IT (occurrence: IT)
  Receive Date: 20130529
  Receipt Date: 20140415
  Transmission Date: 20141212
  Serious: Yes (Hospitalization)
  Sender: FDA-Public Use
  Company Number: IT-PFIZER INC-2013162868

PATIENT
  Age: 55 Year
  Sex: Female

DRUGS (8)
  1. HALCION [Suspect]
     Dosage: 0.25 MG, 1X/DAY
     Route: 048
     Dates: start: 20120101, end: 20130108
  2. XANAX [Suspect]
     Dosage: 0.5 MG, 1X/DAY
     Route: 048
     Dates: start: 20120101, end: 20130108
  3. METFORMIN HYDROCHLORIDE [Concomitant]
     Dosage: 2 G, UNK
     Route: 048
  4. GLICLAZIDE [Concomitant]
     Dosage: 30 MG, UNK
  5. LYRICA [Concomitant]
  6. CONTRAMAL [Concomitant]
  7. CIPRALEX [Concomitant]
  8. JURNISTA [Concomitant]

REACTIONS (3)
  - Faeces pale [Recovering/Resolving]
  - Syncope [Recovering/Resolving]
  - Sopor [Recovering/Resolving]
